FAERS Safety Report 10439606 (Version 1)
Quarter: 2014Q3

REPORT INFORMATION
  Report Type: Spontaneous
  Country: US (occurrence: US)
  Receive Date: 20140908
  Receipt Date: 20140908
  Transmission Date: 20150326
  Serious: No
  Sender: FDA-Public Use
  Company Number: US-BRISTOL-MYERS SQUIBB COMPANY-20635983

PATIENT
  Age: 60 Year
  Sex: Female

DRUGS (3)
  1. ABILIFY [Suspect]
     Active Substance: ARIPIPRAZOLE
     Indication: DEPRESSION
     Dates: start: 2014
  2. LITHIUM [Concomitant]
     Active Substance: LITHIUM CARBONATE
  3. EMSAM TRANSDERMAL SYSTEM [Concomitant]
     Dosage: PATCH
     Route: 062

REACTIONS (6)
  - Drug ineffective [Unknown]
  - Movement disorder [Unknown]
  - Salivary hypersecretion [Unknown]
  - Somnolence [Unknown]
  - Asthenia [Unknown]
  - Feeling jittery [Unknown]

NARRATIVE: CASE EVENT DATE: 2004
